FAERS Safety Report 8178854-5 (Version None)
Quarter: 2012Q1

REPORT INFORMATION
  Report Type: 
  Country: None (occurrence: None)
  Receive Date: 20120302
  Receipt Date: 20120220
  Transmission Date: 20120608
  Serious: Yes (Hospitalization)
  Sender: FDA-Public Use
  Company Number: FR-BRISTOL-MYERS SQUIBB COMPANY-16420333

PATIENT
  Age: 70 Year
  Sex: Female

DRUGS (4)
  1. FLUOROURACIL [Concomitant]
     Indication: SQUAMOUS CELL CARCINOMA
     Dates: start: 20091201, end: 20120101
  2. MITOMYCIN [Suspect]
     Indication: SQUAMOUS CELL CARCINOMA
     Dosage: ROUTE: IJ,INTERRUPTED IN 2012 AND RESTARTED
     Dates: start: 20091201
  3. LEUCOVORIN CALCIUM [Concomitant]
     Indication: SQUAMOUS CELL CARCINOMA
     Dates: start: 20091201, end: 20120101
  4. CISPLATIN [Concomitant]
     Indication: SQUAMOUS CELL CARCINOMA
     Dates: start: 20091201, end: 20120101

REACTIONS (2)
  - PRURITUS [None]
  - RASH ERYTHEMATOUS [None]
